FAERS Safety Report 9175348 (Version 1)
Quarter: 2013Q1

REPORT INFORMATION
  Report Type: Spontaneous
  Country: US (occurrence: US)
  Receive Date: 20130320
  Receipt Date: 20130320
  Transmission Date: 20140127
  Serious: Yes (Other)
  Sender: FDA-Public Use
  Company Number: US-ROCHE-1168341

PATIENT
  Sex: Female
  Weight: 61.29 kg

DRUGS (5)
  1. ACCUTANE [Suspect]
     Indication: ACNE
     Route: 065
     Dates: start: 1999, end: 2000
  2. ACCUTANE [Suspect]
     Route: 065
     Dates: start: 199911, end: 200006
  3. ACCUTANE [Suspect]
     Route: 065
     Dates: start: 19991123, end: 20000905
  4. ASPIRIN [Concomitant]
  5. IBUPROFEN [Concomitant]

REACTIONS (7)
  - Crohn^s disease [Unknown]
  - Inflammatory bowel disease [Unknown]
  - Emotional distress [Not Recovered/Not Resolved]
  - Depression [Unknown]
  - Intestinal obstruction [Unknown]
  - Female genital tract fistula [Unknown]
  - Irritable bowel syndrome [Unknown]
